FAERS Safety Report 20986626 (Version 1)
Quarter: 2022Q2

REPORT INFORMATION
  Report Type: Spontaneous
  Country: CL (occurrence: CL)
  Receive Date: 20220621
  Receipt Date: 20220621
  Transmission Date: 20220721
  Serious: Yes (Other)
  Sender: FDA-Public Use
  Company Number: CL-GLAXOSMITHKLINE-CL2022AMR093899

PATIENT

DRUGS (2)
  1. FLUTICASONE FUROATE\VILANTEROL TRIFENATATE [Suspect]
     Active Substance: FLUTICASONE FUROATE\VILANTEROL TRIFENATATE
     Indication: Product used for unknown indication
     Dosage: UNK UNK, QD 1 DOSE DELAY
     Dates: start: 20220611
  2. ACETAMINOPHEN [Suspect]
     Active Substance: ACETAMINOPHEN
     Indication: Product used for unknown indication
     Dosage: UNK

REACTIONS (7)
  - Brain oedema [Unknown]
  - Tachycardia [Recovered/Resolved]
  - Tremor [Unknown]
  - Nausea [Unknown]
  - Respiratory rate increased [Unknown]
  - Fatigue [Unknown]
  - Balance disorder [Unknown]

NARRATIVE: CASE EVENT DATE: 20220611
